FAERS Safety Report 8347007-X (Version None)
Quarter: 2012Q2

REPORT INFORMATION
  Report Type: 
  Country: None (occurrence: None)
  Receive Date: 20120509
  Receipt Date: 20120501
  Transmission Date: 20120825
  Serious: Yes (Other)
  Sender: FDA-Public Use
  Company Number: CA-SANOFI-AVENTIS-2012SA015129

PATIENT
  Age: 62 Year
  Sex: Female

DRUGS (12)
  1. PIPERACILLIN AND TAZOBACTAM [Concomitant]
     Dates: start: 20111226, end: 20111228
  2. PLAVIX [Suspect]
     Route: 065
  3. NOVORAPID [Concomitant]
  4. ANGIOTENSIN II ANTAGONISTS [Concomitant]
  5. HEPARIN [Concomitant]
     Dosage: DOSE:5000 UNIT(S)
     Dates: start: 20101213, end: 20101213
  6. LANTUS [Concomitant]
  7. PANTOPRAZOLE [Concomitant]
     Dates: start: 20111225, end: 20111227
  8. AMOXICILLIN AND CLAVULANATE POTASSIUM [Concomitant]
     Dates: start: 20111228, end: 20120107
  9. ALL OTHER THERAPEUTIC PRODUCTS [Concomitant]
  10. ASPIRIN [Suspect]
     Route: 065
  11. METFORMIN HCL [Concomitant]
  12. LANSOPRAZOLE [Concomitant]
     Dates: start: 20111226

REACTIONS (7)
  - MELAENA [None]
  - HEPATIC NEOPLASM [None]
  - HAEMATEMESIS [None]
  - PYREXIA [None]
  - HAEMOGLOBIN DECREASED [None]
  - UPPER GASTROINTESTINAL HAEMORRHAGE [None]
  - ANGIODYSPLASIA [None]
